FAERS Safety Report 5623113-5 (Version None)
Quarter: 2008Q1

REPORT INFORMATION
  Report Type: 
  Country: None (occurrence: None)
  Receive Date: 20080212
  Receipt Date: 20080207
  Transmission Date: 20080703
  Serious: Yes (Life-Threatening)
  Sender: FDA-Public Use
  Company Number: A0708122A

PATIENT
  Age: 32 Year
  Sex: Female

DRUGS (18)
  1. TYKERB [Suspect]
     Indication: BREAST CANCER
     Dosage: 5TAB PER DAY
     Route: 048
     Dates: start: 20071209, end: 20080130
  2. XELODA [Suspect]
  3. ZOCOR [Concomitant]
  4. LEVOXYL [Concomitant]
  5. CATAPRES [Concomitant]
  6. PHENERGAN HCL [Concomitant]
  7. BENADRYL [Concomitant]
  8. PRILOSEC [Concomitant]
  9. ASCORBIC ACID [Concomitant]
  10. OXYCODONE HCL [Concomitant]
  11. NEURONTIN [Concomitant]
  12. ELAVIL [Concomitant]
  13. POTASSIUM CHLORIDE [Concomitant]
  14. LUPRON DEPOT-3 [Concomitant]
  15. REGLAN [Concomitant]
  16. COUMADIN [Concomitant]
  17. METHADONE HCL [Concomitant]
  18. AROMASIN [Concomitant]

REACTIONS (9)
  - CONTUSION [None]
  - DIARRHOEA [None]
  - DYSPNOEA [None]
  - EPISTAXIS [None]
  - FATIGUE [None]
  - INTERNATIONAL NORMALISED RATIO INCREASED [None]
  - NAUSEA [None]
  - SEPSIS [None]
  - VOMITING [None]
